FAERS Safety Report 15402553 (Version 1)
Quarter: 2018Q3

REPORT INFORMATION
  Report Type: Spontaneous
  Country: US (occurrence: US)
  Receive Date: 20180916
  Receipt Date: 20180916
  Transmission Date: 20181010
  Serious: Yes (Disabling)
  Sender: FDA-Public Use
  Company Number: None

PATIENT
  Age: 51 Year
  Sex: Male
  Weight: 92.7 kg

DRUGS (7)
  1. VITAMIN C  PEPSIN HCL, [Concomitant]
  2. MAGNESIUM [Concomitant]
     Active Substance: MAGNESIUM
  3. ADRENAL SUPPORT [Concomitant]
     Active Substance: HOMEOPATHICS
  4. DIGESTIVE ENZYMES [Concomitant]
     Active Substance: UNSPECIFIED INGREDIENT
  5. CIPRO [Suspect]
     Active Substance: CIPROFLOXACIN HYDROCHLORIDE
     Indication: URINARY TRACT INFECTION
     Dosage: ?          QUANTITY:14 TABLET(S);?
     Route: 048
  6. COQ10 [Concomitant]
     Active Substance: UBIDECARENONE
  7. FISH OIL [Concomitant]
     Active Substance: FISH OIL

REACTIONS (35)
  - Fatigue [None]
  - Palpitations [None]
  - Hypoaesthesia [None]
  - Muscle atrophy [None]
  - Collagen disorder [None]
  - Neuropathy peripheral [None]
  - Ear congestion [None]
  - Paraesthesia oral [None]
  - Asthenia [None]
  - Loss of employment [None]
  - Food allergy [None]
  - Dry mouth [None]
  - Blepharospasm [None]
  - Feeling abnormal [None]
  - Insomnia [None]
  - Paraesthesia [None]
  - Hypotension [None]
  - Anxiety [None]
  - Skin wrinkling [None]
  - Headache [None]
  - Confusional state [None]
  - Tinnitus [None]
  - Depression [None]
  - Burning sensation [None]
  - Inflammation [None]
  - Weight decreased [None]
  - Oral discomfort [None]
  - Suicidal ideation [None]
  - Dry skin [None]
  - Vision blurred [None]
  - Pain [None]
  - Joint noise [None]
  - Candida infection [None]
  - Dysgeusia [None]
  - Amnesia [None]

NARRATIVE: CASE EVENT DATE: 20170929
